FAERS Safety Report 6140492-3 (Version None)
Quarter: 2009Q1

REPORT INFORMATION
  Report Type: 
  Country: None (occurrence: None)
  Receive Date: 20090331
  Receipt Date: 20090317
  Transmission Date: 20090719
  Serious: Yes (Hospitalization)
  Sender: FDA-Public Use
  Company Number: 20090095

PATIENT
  Age: 66 Year
  Sex: Female
  Weight: 65.7716 kg

DRUGS (11)
  1. VENOFER [Suspect]
     Indication: IRON DEFICIENCY ANAEMIA
     Dosage: 300 MG/M2/WEEK, 20 MG/ML; INTRAVENOUS
     Route: 042
     Dates: start: 20090114, end: 20090204
  2. PREMPRO [Suspect]
     Indication: MENOPAUSE
     Dosage: 0.3MG/DAY ORAL
     Route: 048
  3. FLONASE [Concomitant]
  4. PERCOCET [Concomitant]
  5. ALLEGRA [Concomitant]
  6. NEXIUM [Concomitant]
  7. ADVAIR HFA [Concomitant]
  8. HYDROCHLOROTHIAZIDE [Concomitant]
  9. ZOLOFT [Concomitant]
  10. SPIRIVA [Concomitant]
  11. MUCINEX [Concomitant]

REACTIONS (2)
  - INFLAMMATION [None]
  - RENAL INFARCT [None]
